FAERS Safety Report 6169257-3 (Version None)
Quarter: 2009Q2

REPORT INFORMATION
  Report Type: 
  Country: None (occurrence: None)
  Receive Date: 20090427
  Receipt Date: 20090423
  Transmission Date: 20091009
  Serious: Yes (Life-Threatening, Other)
  Sender: FDA-Public Use
  Company Number: US-GENENTECH-279998

PATIENT
  Sex: Male
  Weight: 98.866 kg

DRUGS (7)
  1. XOLAIR [Suspect]
     Indication: ASTHMA
     Dosage: 300 MG, Q4W
     Route: 058
     Dates: start: 20090216
  2. ADVAIR HFA [Concomitant]
     Indication: DRUG USE FOR UNKNOWN INDICATION
     Route: 055
  3. FLONASE [Concomitant]
     Indication: RHINITIS
     Dosage: 50 A?G, QD
     Route: 045
  4. PROAIR HFA [Concomitant]
     Indication: DYSPNOEA
     Dosage: 108 UNK, PRN
     Route: 055
  5. CLARINEX [Concomitant]
     Indication: HYPERSENSITIVITY
     Dosage: 5 MG, QD
     Route: 048
  6. NEXIUM [Concomitant]
     Indication: GASTROOESOPHAGEAL REFLUX DISEASE
     Dosage: 40 MG, BID
     Route: 048
  7. ALVESCO [Concomitant]
     Indication: ASTHMA
     Dosage: 160 MG, BID
     Route: 055

REACTIONS (1)
  - THROAT TIGHTNESS [None]
